FAERS Safety Report 4460982-9 (Version None)
Quarter: 2004Q3

REPORT INFORMATION
  Report Type: 
  Country: None (occurrence: None)
  Receive Date: 20040928
  Receipt Date: 20040621
  Transmission Date: 20050211
  Serious: No
  Sender: FDA-Public Use
  Company Number: US-GLAXOSMITHKLINE-A0515413A

PATIENT
  Age: 73 Year
  Sex: Female

DRUGS (10)
  1. ADVAIR DISKUS 100/50 [Suspect]
     Indication: ASTHMA
     Dosage: 1PUFF TWICE PER DAY
     Route: 055
  2. XOPENEX [Concomitant]
  3. FOSAMAX [Concomitant]
  4. POTASSIUM [Concomitant]
  5. METFORMIN HCL [Concomitant]
  6. FUROSEMIDE [Concomitant]
  7. DIOVAN [Concomitant]
  8. REMERON [Concomitant]
  9. ALLEGRA [Concomitant]
  10. LEVOXYL [Concomitant]

REACTIONS (3)
  - CANDIDIASIS [None]
  - DYSPNOEA [None]
  - MUSCLE SPASMS [None]
